FAERS Safety Report 24264711 (Version 1)
Quarter: 2024Q3

REPORT INFORMATION
  Report Type: Spontaneous
  Country: IN (occurrence: IN)
  Receive Date: 20240829
  Receipt Date: 20240829
  Transmission Date: 20241017
  Serious: Yes (Death, Other)
  Sender: PFIZER
  Company Number: IN-PFIZER INC-PV202400110786

PATIENT
  Age: 54 Year

DRUGS (1)
  1. CRIZOTINIB [Suspect]
     Active Substance: CRIZOTINIB
     Indication: Non-small cell lung cancer
     Dosage: 200 MG, BD
     Route: 048
     Dates: start: 20240803

REACTIONS (1)
  - Death [Fatal]

NARRATIVE: CASE EVENT DATE: 20240827
